FAERS Safety Report 8536459-8 (Version None)
Quarter: 2012Q3

REPORT INFORMATION
  Report Type: 
  Country: None (occurrence: None)
  Receive Date: 20120725
  Receipt Date: 20120724
  Transmission Date: 20120928
  Serious: Yes (Hospitalization)
  Sender: FDA-Public Use
  Company Number: ID-ROCHE-1092271

PATIENT
  Sex: Male
  Weight: 68.5 kg

DRUGS (5)
  1. PEGASYS [Suspect]
     Indication: HEPATITIS B
     Route: 058
     Dates: start: 20110208, end: 20111025
  2. TRANSAMINE CAP [Concomitant]
     Indication: EPISTAXIS
     Route: 048
     Dates: start: 20111109, end: 20111116
  3. VITAMIN K TAB [Concomitant]
     Indication: EPISTAXIS
     Route: 048
     Dates: start: 20111109, end: 20111116
  4. BARACLUDE [Concomitant]
     Indication: HEPATITIS B
     Route: 048
     Dates: start: 20110516, end: 20120128
  5. XANAX [Concomitant]
     Route: 048
     Dates: start: 20111109, end: 20111116

REACTIONS (5)
  - NAUSEA [None]
  - INFLUENZA LIKE ILLNESS [None]
  - EPISTAXIS [None]
  - MYALGIA [None]
  - DECREASED APPETITE [None]
